FAERS Safety Report 15845227 (Version 1)
Quarter: 2019Q1

REPORT INFORMATION
  Report Type: Spontaneous
  Country: FR (occurrence: FR)
  Receive Date: 20190119
  Receipt Date: 20190119
  Transmission Date: 20190417
  Serious: Yes (Death, Life-Threatening, Hospitalization)
  Sender: FDA-Public Use
  Company Number: FR-AMGEN-FRACT2019008178

PATIENT
  Age: 64 Year
  Sex: Female

DRUGS (1)
  1. ENBREL [Suspect]
     Active Substance: ETANERCEPT
     Indication: PUSTULAR PSORIASIS
     Dosage: 50.0 MG, 2X/WK
     Route: 058

REACTIONS (19)
  - General physical health deterioration [Fatal]
  - Shock [Fatal]
  - Skin erosion [Unknown]
  - Hepatocellular injury [Fatal]
  - Dehydration [Unknown]
  - Deep vein thrombosis [Fatal]
  - Tongue dry [Unknown]
  - Pain of skin [Unknown]
  - Cholestasis [Fatal]
  - Bacterial sepsis [Fatal]
  - Dermatitis exfoliative generalised [Unknown]
  - Purulent discharge [Unknown]
  - Haemoglobin decreased [Unknown]
  - Multiple organ dysfunction syndrome [Fatal]
  - Drug effect decreased [Unknown]
  - Renal failure [Fatal]
  - Platelet count decreased [Unknown]
  - Skin lesion [Unknown]
  - Pulmonary embolism [Fatal]

NARRATIVE: CASE EVENT DATE: 2006
